FAERS Safety Report 9786125 (Version 1)
Quarter: 2013Q4

REPORT INFORMATION
  Report Type: Spontaneous
  Country: RU (occurrence: RU)
  Receive Date: 20131227
  Receipt Date: 20131227
  Transmission Date: 20140711
  Serious: Yes (Hospitalization)
  Sender: FDA-Public Use
  Company Number: PHHY2013RU152142

PATIENT
  Age: 36 Year
  Sex: Female

DRUGS (1)
  1. FAMVIR [Suspect]
     Route: 048

REACTIONS (3)
  - Blood pressure increased [Recovered/Resolved]
  - Angioedema [Recovered/Resolved]
  - Disease progression [Unknown]
